FAERS Safety Report 6084410-5 (Version None)
Quarter: 2009Q1

REPORT INFORMATION
  Report Type: 
  Country: None (occurrence: None)
  Receive Date: 20090219
  Receipt Date: 20090216
  Transmission Date: 20090719
  Serious: Yes (Other)
  Sender: FDA-Public Use
  Company Number: A0769403A

PATIENT
  Sex: Male

DRUGS (1)
  1. VALTREX [Suspect]
     Indication: ENCEPHALITIS HERPES
     Dosage: 8G PER DAY

REACTIONS (3)
  - ADVERSE EVENT [None]
  - DRUG TOXICITY [None]
  - OVERDOSE [None]
